FAERS Safety Report 19772130 (Version 1)
Quarter: 2021Q3

REPORT INFORMATION
  Report Type: Spontaneous
  Country: US (occurrence: US)
  Receive Date: 20210827
  Receipt Date: 20210827
  Transmission Date: 20211014
  Serious: Yes (Death)
  Sender: FDA-Public Use
  Company Number: None

PATIENT
  Age: 82 Year
  Sex: Female

DRUGS (1)
  1. PROCRIT [Suspect]
     Active Substance: ERYTHROPOIETIN
     Indication: REFRACTORY CYTOPENIA WITH UNILINEAGE DYSPLASIA
     Dosage: ?          OTHER STRENGTH:40,000 U/ML;OTHER DOSE:80,000 UNITS;?
     Route: 058
     Dates: end: 20210817

REACTIONS (1)
  - Death [None]

NARRATIVE: CASE EVENT DATE: 20210817
